FAERS Safety Report 5366198-6 (Version None)
Quarter: 2007Q2

REPORT INFORMATION
  Report Type: 
  Country: None (occurrence: None)
  Receive Date: 20070619
  Receipt Date: 20070611
  Transmission Date: 20071010
  Serious: Yes (Disabling)
  Sender: FDA-Public Use
  Company Number: 2007RL000247

PATIENT
  Age: 50 Year
  Sex: Male
  Weight: 83.9154 kg

DRUGS (3)
  1. OMACOR [Suspect]
     Indication: BLOOD TRIGLYCERIDES INCREASED
     Dosage: 4 GM; QD; PO
     Route: 048
     Dates: start: 20061001, end: 20070501
  2. SYNTHROID [Concomitant]
  3. SAW PALMETTO [Concomitant]

REACTIONS (1)
  - GOUTY ARTHRITIS [None]
